FAERS Safety Report 25421418 (Version 1)
Quarter: 2025Q2

REPORT INFORMATION
  Report Type: Spontaneous
  Country: US (occurrence: US)
  Receive Date: 20250611
  Receipt Date: 20250611
  Transmission Date: 20250716
  Serious: No
  Sender: BIOGEN
  Company Number: US-BIOGEN-2022BI01148398

PATIENT
  Age: 71 Year
  Sex: Female

DRUGS (18)
  1. VUMERITY [Suspect]
     Active Substance: DIROXIMEL FUMARATE
     Indication: Multiple sclerosis
     Dosage: STARTING DOSE
     Route: 050
     Dates: start: 20220322
  2. VUMERITY [Suspect]
     Active Substance: DIROXIMEL FUMARATE
     Dosage: MAINTENANCE DOSE
     Route: 050
     Dates: start: 2022, end: 20230131
  3. VUMERITY [Suspect]
     Active Substance: DIROXIMEL FUMARATE
     Dosage: TAKING HALF THE RECOMMENDED DOSING
     Route: 050
     Dates: start: 202504
  4. EFFEXOR XR [Concomitant]
     Active Substance: VENLAFAXINE HYDROCHLORIDE
     Route: 050
  5. TOPAMAX [Concomitant]
     Active Substance: TOPIRAMATE
     Route: 050
  6. WELLBUTRIN SR [Concomitant]
     Active Substance: BUPROPION HYDROCHLORIDE
     Route: 050
  7. CELEBREX [Concomitant]
     Active Substance: CELECOXIB
     Route: 050
  8. ATORVASTATIN CALCIUM [Concomitant]
     Active Substance: ATORVASTATIN CALCIUM
     Route: 050
  9. GABAPENTIN [Concomitant]
     Active Substance: GABAPENTIN
     Route: 050
  10. SUDAFED [Concomitant]
     Active Substance: PSEUDOEPHEDRINE HYDROCHLORIDE
     Route: 050
  11. PEPCID AC [Concomitant]
     Active Substance: FAMOTIDINE
     Route: 050
  12. ASPIRIN [Concomitant]
     Active Substance: ASPIRIN
     Route: 050
  13. ALIGN [Concomitant]
     Active Substance: BIFIDOBACTERIUM LONGUM SUBSP. INFANTIS
     Route: 050
  14. TIZANIDINE HYDROCHLORIDE [Concomitant]
     Active Substance: TIZANIDINE HYDROCHLORIDE
     Route: 050
  15. ZINC [Concomitant]
     Active Substance: ZINC
     Route: 050
  16. MODAFINIL [Concomitant]
     Active Substance: MODAFINIL
     Route: 050
  17. SYNTHROID [Concomitant]
     Active Substance: LEVOTHYROXINE SODIUM
     Route: 050
  18. CULTURELLE [Concomitant]
     Active Substance: LACTOBACILLUS RHAMNOSUS
     Route: 050

REACTIONS (7)
  - Intentional product misuse [Not Recovered/Not Resolved]
  - Hyperhidrosis [Not Recovered/Not Resolved]
  - Constipation [Not Recovered/Not Resolved]
  - COVID-19 [Unknown]
  - Abdominal discomfort [Unknown]
  - Gastrointestinal disorder [Unknown]
  - Diarrhoea [Not Recovered/Not Resolved]

NARRATIVE: CASE EVENT DATE: 20220601
